FAERS Safety Report 7643734-8 (Version None)
Quarter: 2011Q3

REPORT INFORMATION
  Report Type: 
  Country: None (occurrence: None)
  Receive Date: 20110729
  Receipt Date: 20110720
  Transmission Date: 20111222
  Serious: Yes (Hospitalization, Other)
  Sender: FDA-Public Use
  Company Number: US-AMGEN-USASP2011036920

PATIENT
  Sex: Male

DRUGS (1)
  1. ENBREL [Suspect]
     Indication: RHEUMATOID ARTHRITIS
     Dosage: 50 MG, QWK
     Dates: start: 20041101

REACTIONS (5)
  - JOINT SWELLING [None]
  - JOINT WARMTH [None]
  - ARTHRITIS INFECTIVE [None]
  - KNEE ARTHROPLASTY [None]
  - BLOOD CREATININE INCREASED [None]
